FAERS Safety Report 6974341-8 (Version None)
Quarter: 2010Q3

REPORT INFORMATION
  Report Type: 
  Country: None (occurrence: None)
  Receive Date: 20100909
  Receipt Date: 20100831
  Transmission Date: 20110219
  Serious: Yes (Other)
  Sender: FDA-Public Use
  Company Number: PHHY2010CA57472

PATIENT
  Sex: Female

DRUGS (1)
  1. ELIDEL [Suspect]
     Dosage: UNK
     Route: 061
     Dates: start: 20060101, end: 20100101

REACTIONS (3)
  - BACK PAIN [None]
  - RASH [None]
  - SKIN DISCOLOURATION [None]
